FAERS Safety Report 25764203 (Version 1)
Quarter: 2025Q3

REPORT INFORMATION
  Report Type: Spontaneous
  Country: US (occurrence: US)
  Receive Date: 20250905
  Receipt Date: 20250905
  Transmission Date: 20251020
  Serious: No
  Sender: DOMPE FARMACEUTICI
  Company Number: US-FARMAPROD-202412-4199

PATIENT
  Sex: Male

DRUGS (13)
  1. OXERVATE [Suspect]
     Active Substance: CENEGERMIN-BKBJ
     Indication: Neurotrophic keratopathy
     Route: 047
     Dates: start: 20241203
  2. OXERVATE [Suspect]
     Active Substance: CENEGERMIN-BKBJ
     Indication: Keratitis
  3. TRAZODONE HCL [Concomitant]
     Active Substance: TRAZODONE HYDROCHLORIDE
  4. SUMATRIPTAN SUCCINATE [Concomitant]
     Active Substance: SUMATRIPTAN SUCCINATE
  5. ROPINIROLE [Concomitant]
     Active Substance: ROPINIROLE
  6. PRILOSEC OTC [Concomitant]
     Active Substance: OMEPRAZOLE MAGNESIUM
  7. FYCOMPA [Concomitant]
     Active Substance: PERAMPANEL
  8. ERYTHROMYCIN [Concomitant]
     Active Substance: ERYTHROMYCIN
  9. CLOBAZAM [Concomitant]
     Active Substance: CLOBAZAM
  10. BRIVIACT [Concomitant]
     Active Substance: BRIVARACETAM
  11. LAMOTRIGINE [Concomitant]
     Active Substance: LAMOTRIGINE
  12. BRIMONIDINE TARTRATE-TIMOLOL [Concomitant]
  13. TIMOLOL MALEATE [Concomitant]
     Active Substance: TIMOLOL MALEATE

REACTIONS (6)
  - Weight increased [Unknown]
  - Off label use [Unknown]
  - Eye swelling [Unknown]
  - Ocular hyperaemia [Unknown]
  - Drug ineffective [Unknown]
  - Product dose omission issue [Unknown]
